FAERS Safety Report 10419140 (Version 1)
Quarter: 2014Q2

REPORT INFORMATION
  Report Type: Spontaneous
  Country: US (occurrence: None)
  Receive Date: 20140617
  Receipt Date: 20140617
  Transmission Date: 20141212
  Serious: Yes (Other)
  Sender: FDA-Public Use
  Company Number: 1239177

PATIENT
  Sex: Female

DRUGS (1)
  1. ACTERMA 5% TWO INFUSION DOSES [Suspect]
     Indication: PRODUCT USED FOR UNKNOWN INDICATION
     Route: 042

REACTIONS (3)
  - Ear pruritus [None]
  - Angioedema [None]
  - Urticaria [None]
